FAERS Safety Report 10158432 (Version 1)
Quarter: 2014Q2

REPORT INFORMATION
  Report Type: Report from Study
  Country: NL (occurrence: NL)
  Receive Date: 20140507
  Receipt Date: 20140507
  Transmission Date: 20141212
  Serious: Yes (Other)
  Sender: FDA-Public Use
  Company Number: PHHY2014NL055309

PATIENT
  Sex: Female

DRUGS (2)
  1. ACLASTA [Suspect]
     Indication: OSTEOPOROSIS
     Dosage: 5 MG, 1 PER 52 WEEKS
     Route: 042
     Dates: start: 20120313
  2. ACLASTA [Suspect]
     Dosage: 5 MG, 1 PER 52 WEEKS
     Route: 042
     Dates: start: 20130313

REACTIONS (1)
  - Senile dementia [Unknown]
